FAERS Safety Report 23896615 (Version 2)
Quarter: 2024Q2

REPORT INFORMATION
  Report Type: Spontaneous
  Country: JP (occurrence: JP)
  Receive Date: 20240524
  Receipt Date: 20240607
  Transmission Date: 20240716
  Serious: Yes (Hospitalization, Other)
  Sender: FDA-Public Use
  Company Number: JP-ferring-EVA202400730FERRINGPH

PATIENT

DRUGS (2)
  1. DEGARELIX [Suspect]
     Active Substance: DEGARELIX
     Indication: Prostate cancer
     Dosage: UNK
     Route: 065
     Dates: start: 20240424
  2. BICALUTAMIDE [Suspect]
     Active Substance: BICALUTAMIDE
     Indication: Product used for unknown indication
     Dosage: UNK
     Route: 048
     Dates: start: 20240424

REACTIONS (2)
  - Blood creatine increased [Recovering/Resolving]
  - Blood urea increased [Recovering/Resolving]

NARRATIVE: CASE EVENT DATE: 20240425
